FAERS Safety Report 4672690-X (Version None)
Quarter: 2005Q2

REPORT INFORMATION
  Report Type: 
  Country: None (occurrence: None)
  Receive Date: 20050524
  Receipt Date: 20050509
  Transmission Date: 20051028
  Serious: Yes (Hospitalization)
  Sender: FDA-Public Use
  Company Number: FR-ROCHE-404071

PATIENT
  Age: 32 Year
  Sex: Male

DRUGS (4)
  1. XELODA [Suspect]
     Route: 048
     Dates: start: 20050203
  2. XELODA [Suspect]
     Dosage: DOSE WAS REDUCED BY 25%.
     Route: 048
  3. ELOXATIN [Suspect]
     Route: 042
     Dates: start: 20050203
  4. ELOXATIN [Suspect]
     Dosage: DOSE WAS REDUCED BY 25%.
     Route: 042

REACTIONS (4)
  - OEDEMA [None]
  - PAIN [None]
  - PARAESTHESIA [None]
  - PARESIS [None]
